FAERS Safety Report 8610981-8 (Version None)
Quarter: 2012Q3

REPORT INFORMATION
  Report Type: 
  Country: None (occurrence: None)
  Receive Date: 20120420
  Receipt Date: 20110401
  Transmission Date: 20120928
  Serious: Yes (Hospitalization)
  Sender: FDA-Public Use
  Company Number: WAES 1104UAS00219

PATIENT
  Age: 13 Year
  Sex: Female
  Weight: 52.1637 kg

DRUGS (2)
  1. PREDNISONE [Concomitant]
  2. SINGULAIR [Suspect]
     Indication: ASTHMA
     Dosage: PO
     Route: 048
     Dates: start: 19970101, end: 20041001

REACTIONS (3)
  - DEPRESSION [None]
  - TREMOR [None]
  - AUTOIMMUNE DISORDER [None]
